FAERS Safety Report 4628909-4 (Version None)
Quarter: 2005Q2

REPORT INFORMATION
  Report Type: 
  Country: None (occurrence: None)
  Receive Date: 20050406
  Receipt Date: 20050323
  Transmission Date: 20051028
  Serious: Yes (Hospitalization)
  Sender: FDA-Public Use
  Company Number: 2001070033US

PATIENT
  Sex: Female
  Weight: 72.11 kg

DRUGS (8)
  1. XANAX [Suspect]
     Indication: ANXIETY
     Dosage: 2 MG (3 IN 1 D), ORAL
     Route: 048
     Dates: start: 19860101
  2. ESCITALOPRAM OXALATE [Suspect]
     Indication: ILL-DEFINED DISORDER
  3. ESTROGEN NOS (ESTROGEN NOS) [Concomitant]
  4. NEFAZODONE HCL [Concomitant]
  5. FLUOXETINE HCL [Concomitant]
  6. HYDROCHLOROTHIAZIDE [Concomitant]
  7. ESTRADIOL [Concomitant]
  8. PAROXETINE HCL [Concomitant]

REACTIONS (32)
  - ABDOMINAL DISTENSION [None]
  - ABDOMINAL PAIN UPPER [None]
  - ACTIVITIES OF DAILY LIVING IMPAIRED [None]
  - ASTHENIA [None]
  - BLOOD GLUCOSE FLUCTUATION [None]
  - CONSTIPATION [None]
  - DECREASED APPETITE [None]
  - DEPRESSION [None]
  - DIFFICULTY IN WALKING [None]
  - DRUG DEPENDENCE [None]
  - DRUG EFFECT DECREASED [None]
  - DRUG TOLERANCE INCREASED [None]
  - DRUG WITHDRAWAL SYNDROME [None]
  - DYSPHAGIA [None]
  - DYSPNOEA [None]
  - FAMILY STRESS [None]
  - FEELING ABNORMAL [None]
  - FEELING JITTERY [None]
  - HEPATOCELLULAR DAMAGE [None]
  - HYPERVENTILATION [None]
  - IMPAIRED DRIVING ABILITY [None]
  - MUSCLE SPASMS [None]
  - MYALGIA [None]
  - ORAL INTAKE REDUCED [None]
  - PANIC ATTACK [None]
  - PHARMACEUTICAL PRODUCT COMPLAINT [None]
  - SENSATION OF HEAVINESS [None]
  - TENSION HEADACHE [None]
  - TREATMENT NONCOMPLIANCE [None]
  - VISION BLURRED [None]
  - VISUAL ACUITY REDUCED [None]
  - WEIGHT DECREASED [None]
